FAERS Safety Report 18462553 (Version 1)
Quarter: 2020Q4

REPORT INFORMATION
  Report Type: Spontaneous
  Country: US (occurrence: US)
  Receive Date: 20201104
  Receipt Date: 20201104
  Transmission Date: 20210114
  Serious: Yes (Life-Threatening, Hospitalization, Other)
  Sender: FDA-Public Use
  Company Number: US-LUPIN PHARMACEUTICALS INC.-2020-08251

PATIENT
  Age: 26 Year
  Sex: Female

DRUGS (6)
  1. GLUCAGON. [Suspect]
     Active Substance: GLUCAGON
     Indication: INTENTIONAL OVERDOSE
     Dosage: UNK
     Route: 042
  2. INSULIN [Suspect]
     Active Substance: INSULIN NOS
     Indication: INTENTIONAL OVERDOSE
     Dosage: HIGH DOSE
     Route: 065
  3. AMLODIPINE [Suspect]
     Active Substance: AMLODIPINE BESYLATE
     Indication: PRODUCT USED FOR UNKNOWN INDICATION
     Dosage: 60 DOSAGE FORM, PILLS
     Route: 065
  4. CALCIUM [Suspect]
     Active Substance: CALCIUM
     Indication: INTENTIONAL OVERDOSE
     Dosage: UNK
     Route: 042
  5. NOREPINEPHRINE. [Suspect]
     Active Substance: NOREPINEPHRINE
     Indication: HYPOTENSION
     Dosage: UNK
     Route: 065
  6. EPINEPHRINE. [Suspect]
     Active Substance: EPINEPHRINE
     Indication: HYPOTENSION
     Dosage: UNK
     Route: 065

REACTIONS (6)
  - Vasodilatation [Recovered/Resolved]
  - Shock [Recovered/Resolved]
  - Hypotension [Recovered/Resolved]
  - Tachycardia [Recovered/Resolved]
  - Intentional overdose [Unknown]
  - Drug ineffective [Recovered/Resolved]
